FAERS Safety Report 16466223 (Version 9)
Quarter: 2023Q1

REPORT INFORMATION
  Report Type: Report from Study
  Country: US (occurrence: US)
  Receive Date: 20190621
  Receipt Date: 20230203
  Transmission Date: 20230417
  Serious: Yes (Other)
  Sender: FDA-Public Use
  Company Number: US-PFIZER INC-2016517428

PATIENT
  Sex: Female
  Weight: 82 kg

DRUGS (3)
  1. LYRICA [Suspect]
     Active Substance: PREGABALIN
     Indication: Neuralgia
     Dosage: 75 MG, UNK [5 - 6 TIMES A DAY]
     Route: 048
     Dates: start: 2005
  2. LYRICA [Suspect]
     Active Substance: PREGABALIN
     Indication: Back pain
     Dosage: 75 MG, UNK (6 X DAY)
     Route: 048
  3. LYRICA [Suspect]
     Active Substance: PREGABALIN
     Dosage: 75 MG, UNK (1-2 ORALLY, TID (THREE TIMES A DAY) MAX 6/DAY)/[TAKES 1 EVERY FOR 4 HOURS]
     Route: 048

REACTIONS (12)
  - Foot fracture [Not Recovered/Not Resolved]
  - Fall [Unknown]
  - Sneezing [Unknown]
  - Oropharyngeal pain [Unknown]
  - Nervousness [Unknown]
  - Anxiety [Unknown]
  - Nasopharyngitis [Unknown]
  - Cough [Unknown]
  - Loss of personal independence in daily activities [Unknown]
  - Intentional product misuse [Unknown]
  - Off label use [Unknown]
  - Product prescribing error [Unknown]

NARRATIVE: CASE EVENT DATE: 20050101
